FAERS Safety Report 4638384-1 (Version None)
Quarter: 2005Q2

REPORT INFORMATION
  Report Type: 
  Country: None (occurrence: None)
  Receive Date: 20050415
  Receipt Date: 20050326
  Transmission Date: 20051028
  Serious: Yes (Death, Life-Threatening)
  Sender: FDA-Public Use
  Company Number: JP_050306078

PATIENT
  Age: 68 Year
  Sex: Male
  Weight: 51 kg

DRUGS (6)
  1. GEMZAR [Suspect]
     Indication: PANCREATIC CARCINOMA STAGE IV
     Dosage: 1000 MG OTHER
     Route: 042
     Dates: start: 20050126, end: 20050126
  2. PREDNISOLONE [Concomitant]
  3. HUMULIN R [Concomitant]
  4. HUMULIN N [Concomitant]
     Indication: PANCREATIC CARCINOMA STAGE IV
     Dosage: 1000 MG OTHER
     Route: 048
     Dates: start: 20050126, end: 20050126
  5. ................ [Concomitant]
  6. HUMULIN N [Concomitant]

REACTIONS (8)
  - ANAEMIA [None]
  - ASCITES [None]
  - EPIGLOTTITIS [None]
  - GASTROINTESTINAL PERFORATION [None]
  - HAEMORRHAGE [None]
  - MYOCARDIAL INFARCTION [None]
  - PERITONSILLITIS [None]
  - PLEURAL EFFUSION [None]
